FAERS Safety Report 23760520 (Version 1)
Quarter: 2024Q2

REPORT INFORMATION
  Report Type: Spontaneous
  Country: FR (occurrence: None)
  Receive Date: 20240419
  Receipt Date: 20240419
  Transmission Date: 20240716
  Serious: Yes (Life-Threatening, Hospitalization)
  Sender: FDA-Public Use
  Company Number: 2024A091934

PATIENT
  Age: 77 Year
  Sex: Female
  Weight: 51 kg

DRUGS (2)
  1. IMJUDO [Suspect]
     Active Substance: TREMELIMUMAB\TREMELIMUMAB-ACTL
     Indication: Hepatocellular carcinoma
     Dosage: 300.0MG ONCE/SINGLE ADMINISTRATION
     Route: 040
     Dates: start: 20230911, end: 20230911
  2. IMFINZI [Suspect]
     Active Substance: DURVALUMAB
     Indication: Hepatocellular carcinoma
     Route: 042
     Dates: start: 20230911, end: 20240226

REACTIONS (1)
  - Encephalopathy [Recovering/Resolving]

NARRATIVE: CASE EVENT DATE: 20240303
